FAERS Safety Report 9236245 (Version 1)
Quarter: 2013Q2

REPORT INFORMATION
  Report Type: Spontaneous
  Country: US (occurrence: US)
  Receive Date: 20130417
  Receipt Date: 20130417
  Transmission Date: 20140414
  Serious: No
  Sender: FDA-Public Use
  Company Number: US-GLAXOSMITHKLINE-A0980656A

PATIENT
  Age: 59 Year
  Sex: Female

DRUGS (1)
  1. LUXIQ [Suspect]
     Indication: PRODUCT USED FOR UNKNOWN INDICATION
     Route: 061
     Dates: start: 20120418

REACTIONS (1)
  - Skin irritation [Unknown]
